FAERS Safety Report 10151916 (Version 2)
Quarter: 2014Q2

REPORT INFORMATION
  Report Type: Spontaneous
  Country: JP (occurrence: JP)
  Receive Date: 20140505
  Receipt Date: 20140505
  Transmission Date: 20141212
  Serious: Yes (Hospitalization, Other)
  Sender: FDA-Public Use
  Company Number: JP-JNJFOC-20140409145

PATIENT
  Age: 83 Year
  Sex: Female

DRUGS (9)
  1. REMINYL [Suspect]
     Indication: DEMENTIA ALZHEIMER^S TYPE
     Route: 048
     Dates: end: 20130625
  2. REMINYL [Suspect]
     Indication: DEMENTIA ALZHEIMER^S TYPE
     Route: 048
     Dates: start: 20130625
  3. DIART [Suspect]
     Indication: PRODUCT USED FOR UNKNOWN INDICATION
     Route: 048
  4. THYRADIN S [Concomitant]
     Route: 048
  5. ZETIA [Concomitant]
     Route: 048
  6. FEBURIC [Concomitant]
     Route: 048
  7. SERMION [Concomitant]
     Route: 048
  8. MAINTATE [Concomitant]
     Indication: HYPERTENSION
     Route: 048
  9. BEZATOL SR [Concomitant]
     Route: 048

REACTIONS (3)
  - Fall [Unknown]
  - Altered state of consciousness [Unknown]
  - Bradycardia [Unknown]
